FAERS Safety Report 24847242 (Version 1)
Quarter: 2025Q1

REPORT INFORMATION
  Report Type: Spontaneous
  Country: US (occurrence: US)
  Receive Date: 20250116
  Receipt Date: 20250116
  Transmission Date: 20250408
  Serious: Yes (Hospitalization)
  Sender: STRIDES
  Company Number: US-STRIDES ARCOLAB LIMITED-2024SP013708

PATIENT
  Age: 17 Year
  Sex: Female

DRUGS (2)
  1. METHOTREXATE [Suspect]
     Active Substance: METHOTREXATE
     Indication: Myopathy
     Route: 065
     Dates: start: 202207
  2. PREDNISOLONE [Suspect]
     Active Substance: PREDNISOLONE
     Indication: Myopathy
     Route: 065
     Dates: start: 202207

REACTIONS (2)
  - Therapy partial responder [Unknown]
  - Off label use [Unknown]

NARRATIVE: CASE EVENT DATE: 20220101
